FAERS Safety Report 11792979 (Version 8)
Quarter: 2016Q4

REPORT INFORMATION
  Report Type: Report from Study
  Country: CA (occurrence: CA)
  Receive Date: 20151202
  Receipt Date: 20161125
  Transmission Date: 20170206
  Serious: Yes (Hospitalization)
  Sender: FDA-Public Use
  Company Number: CA-ROCHE-1623648

PATIENT
  Age: 56 Year
  Sex: Female
  Weight: 85 kg

DRUGS (8)
  1. LOSEC [Concomitant]
     Active Substance: OMEPRAZOLE
  2. ACTEMRA [Suspect]
     Active Substance: TOCILIZUMAB
     Indication: RHEUMATOID ARTHRITIS
     Dosage: ON 01/FEB/2016: LATEST INFUSION
     Route: 042
     Dates: start: 20150505
  3. ASA [Concomitant]
     Active Substance: ASPIRIN
  4. EFFEXOR [Concomitant]
     Active Substance: VENLAFAXINE HYDROCHLORIDE
  5. TYLENOL WITH CODEINE [Concomitant]
     Active Substance: ACETAMINOPHEN\CODEINE PHOSPHATE
  6. PREDNISONE. [Concomitant]
     Active Substance: PREDNISONE
  7. SULPHASALAZINE [Concomitant]
     Active Substance: SULFASALAZINE
  8. ACTONEL [Concomitant]
     Active Substance: RISEDRONATE SODIUM

REACTIONS (10)
  - Hypotension [Unknown]
  - Oral herpes [Not Recovered/Not Resolved]
  - Weight increased [Recovering/Resolving]
  - Oxygen saturation decreased [Unknown]
  - Tooth fracture [Unknown]
  - Influenza [Unknown]
  - Nasopharyngitis [Recovered/Resolved]
  - Blood pressure increased [Unknown]
  - Reversible cerebral vasoconstriction syndrome [Unknown]
  - Heart rate decreased [Unknown]

NARRATIVE: CASE EVENT DATE: 20150818
